FAERS Safety Report 9660769 (Version 3)
Quarter: 2013Q4

REPORT INFORMATION
  Report Type: Spontaneous
  Country: SK (occurrence: SK)
  Receive Date: 20131031
  Receipt Date: 20131111
  Transmission Date: 20140711
  Serious: Yes (Death, Hospitalization)
  Sender: FDA-Public Use
  Company Number: SK-GLAXOSMITHKLINE-B0938055A

PATIENT
  Age: 68 Year
  Sex: Female

DRUGS (2)
  1. ARZERRA [Suspect]
     Indication: CHRONIC LYMPHOCYTIC LEUKAEMIA
     Route: 065
     Dates: start: 201205, end: 201301
  2. ACYCLOVIR [Concomitant]
     Indication: ORAL HERPES
     Route: 065
     Dates: start: 201205

REACTIONS (8)
  - Bronchopneumonia [Fatal]
  - Hemiparesis [Unknown]
  - Cardiac disorder [Unknown]
  - Infection [Unknown]
  - Oral herpes [Unknown]
  - Chronic obstructive pulmonary disease [Unknown]
  - Neutropenia [Unknown]
  - Fatigue [Unknown]
